FAERS Safety Report 15066452 (Version 4)
Quarter: 2018Q3

REPORT INFORMATION
  Report Type: Spontaneous
  Country: IT (occurrence: IT)
  Receive Date: 20180626
  Receipt Date: 20180711
  Transmission Date: 20181010
  Serious: Yes (Life-Threatening, Other)
  Sender: FDA-Public Use
  Company Number: IT-MYLANLABS-2018M1043488

PATIENT
  Age: 87 Year
  Sex: Male

DRUGS (24)
  1. RITUXIMAB. [Suspect]
     Active Substance: RITUXIMAB
     Indication: PRIMARY CARDIAC LYMPHOMA
  2. BLEOMYCIN [Suspect]
     Active Substance: BLEOMYCIN SULFATE
     Indication: DIFFUSE LARGE B-CELL LYMPHOMA
  3. MITOXANTRONE [Suspect]
     Active Substance: MITOXANTRONE HYDROCHLORIDE
     Indication: PRIMARY CARDIAC LYMPHOMA
  4. VINCRISTINE [Suspect]
     Active Substance: VINCRISTINE
     Indication: DIFFUSE LARGE B-CELL LYMPHOMA
     Dosage: UNK
     Route: 065
  5. CYCLOPHOSPHAMIDE. [Suspect]
     Active Substance: CYCLOPHOSPHAMIDE
     Indication: DIFFUSE LARGE B-CELL LYMPHOMA
     Dosage: UNK
     Route: 065
  6. PREDNISONE. [Suspect]
     Active Substance: PREDNISONE
     Indication: DIFFUSE LARGE B-CELL LYMPHOMA
     Dosage: UNK
     Route: 065
  7. PREDNISONE. [Suspect]
     Active Substance: PREDNISONE
     Indication: DIFFUSE LARGE B-CELL LYMPHOMA
  8. MITOXANTRONE [Suspect]
     Active Substance: MITOXANTRONE HYDROCHLORIDE
     Indication: DIFFUSE LARGE B-CELL LYMPHOMA
     Dosage: UNK
     Route: 065
  9. RITUXIMAB. [Suspect]
     Active Substance: RITUXIMAB
     Indication: DIFFUSE LARGE B-CELL LYMPHOMA
     Dosage: UNK
     Route: 065
  10. RITUXIMAB. [Suspect]
     Active Substance: RITUXIMAB
     Indication: DIFFUSE LARGE B-CELL LYMPHOMA
  11. CYCLOPHOSPHAMIDE. [Suspect]
     Active Substance: CYCLOPHOSPHAMIDE
     Indication: DIFFUSE LARGE B-CELL LYMPHOMA
  12. CYCLOPHOSPHAMIDE. [Suspect]
     Active Substance: CYCLOPHOSPHAMIDE
     Indication: PRIMARY CARDIAC LYMPHOMA
  13. PREDNISONE. [Suspect]
     Active Substance: PREDNISONE
     Indication: PRIMARY CARDIAC LYMPHOMA
  14. ETOPOSIDE. [Suspect]
     Active Substance: ETOPOSIDE
     Indication: DIFFUSE LARGE B-CELL LYMPHOMA
  15. BLEOMYCIN [Suspect]
     Active Substance: BLEOMYCIN SULFATE
     Indication: DIFFUSE LARGE B-CELL LYMPHOMA
     Dosage: UNK
     Route: 065
  16. BLEOMYCIN [Suspect]
     Active Substance: BLEOMYCIN SULFATE
     Indication: PRIMARY CARDIAC LYMPHOMA
  17. COTRIMOXAZOLE [Concomitant]
     Active Substance: SULFAMETHOXAZOLE\TRIMETHOPRIM
     Indication: ANTIFUNGAL PROPHYLAXIS
     Dosage: UNK
     Route: 065
  18. GRANULOCYTE COLONY STIMULATING FACTOR [Concomitant]
     Active Substance: GRANULOCYTE COLONY-STIMULATING FACTOR NOS
     Indication: PRODUCT USED FOR UNKNOWN INDICATION
  19. MITOXANTRONE [Suspect]
     Active Substance: MITOXANTRONE HYDROCHLORIDE
     Indication: DIFFUSE LARGE B-CELL LYMPHOMA
  20. ETOPOSIDE. [Suspect]
     Active Substance: ETOPOSIDE
     Indication: PRIMARY CARDIAC LYMPHOMA
  21. VINCRISTINE [Suspect]
     Active Substance: VINCRISTINE
     Indication: DIFFUSE LARGE B-CELL LYMPHOMA
  22. VINCRISTINE [Suspect]
     Active Substance: VINCRISTINE
     Indication: PRIMARY CARDIAC LYMPHOMA
  23. SULFAMETHOXAZOLE W/TRIMIPRAMINE [Concomitant]
     Indication: ANTIFUNGAL PROPHYLAXIS
  24. ETOPOSIDE. [Suspect]
     Active Substance: ETOPOSIDE
     Indication: DIFFUSE LARGE B-CELL LYMPHOMA
     Dosage: UNK
     Route: 065

REACTIONS (3)
  - Klebsiella infection [Unknown]
  - Klebsiella sepsis [Unknown]
  - Hepatotoxicity [Unknown]
